FAERS Safety Report 20558065 (Version 8)
Quarter: 2022Q3

REPORT INFORMATION
  Report Type: Report from Study
  Country: CL (occurrence: None)
  Receive Date: 20220307
  Receipt Date: 20220718
  Transmission Date: 20221027
  Serious: Yes (Death, Life-Threatening, Hospitalization)
  Sender: FDA-Public Use
  Company Number: 2022A070470

PATIENT
  Age: 74 Year
  Sex: Female
  Weight: 71 kg

DRUGS (25)
  1. OLAPARIB [Suspect]
     Active Substance: OLAPARIB
     Indication: Triple negative breast cancer
     Dosage: 300 MILLIGRAM, BID
     Route: 048
     Dates: start: 20210602, end: 20211228
  2. OLAPARIB [Suspect]
     Active Substance: OLAPARIB
     Indication: Triple negative breast cancer
     Dosage: 300 MILLIGRAM, BID
     Route: 048
     Dates: start: 20211229, end: 20220113
  3. OLAPARIB [Suspect]
     Active Substance: OLAPARIB
     Indication: Triple negative breast cancer
     Dosage: 300 MILLIGRAM, BID
     Route: 048
     Dates: start: 20220119, end: 20220202
  4. OLAPARIB [Suspect]
     Active Substance: OLAPARIB
     Indication: Triple negative breast cancer
     Dosage: 300 MILLIGRAM, BID
     Route: 048
     Dates: start: 20220202, end: 20220202
  5. PEMBROLIZUMAB [Suspect]
     Active Substance: PEMBROLIZUMAB
     Indication: Triple negative breast cancer
     Dosage: 200 MILLIGRAM, Q3W
     Route: 042
     Dates: start: 20210602, end: 20211228
  6. PEMBROLIZUMAB [Suspect]
     Active Substance: PEMBROLIZUMAB
     Indication: Triple negative breast cancer
     Dosage: 200 MILLIGRAM, Q3W
     Route: 042
     Dates: start: 20220118, end: 20220118
  7. ALPRAZOLAM [Concomitant]
     Active Substance: ALPRAZOLAM
     Indication: Insomnia
     Dosage: 0.5 TABLET, BID
     Route: 048
     Dates: start: 198001
  8. METFORMIN [Concomitant]
     Active Substance: METFORMIN HYDROCHLORIDE
     Indication: Type 2 diabetes mellitus
     Dosage: 850 MILLIGRAM, BID
     Route: 048
     Dates: start: 201101
  9. VALSARTAN [Concomitant]
     Active Substance: VALSARTAN
     Indication: Hypertension
     Dosage: 0.5 TABLET, QD
     Route: 048
     Dates: start: 201401
  10. HYDROCHLOROTHIAZIDE [Concomitant]
     Active Substance: HYDROCHLOROTHIAZIDE
     Indication: Hypertension
     Dosage: 0.5 TABLET, QD
     Route: 048
     Dates: start: 201402
  11. SODIUM ALGINATE [Concomitant]
     Active Substance: SODIUM ALGINATE
     Indication: Prophylaxis
     Dosage: 500 MILLIGRAM, QD
     Route: 048
     Dates: start: 201801
  12. CALCIUM CARBONATE [Concomitant]
     Active Substance: CALCIUM CARBONATE
     Indication: Premedication
     Dosage: 160 MILLIGRAM, QD
     Route: 048
     Dates: start: 201801
  13. SODIUM BICARBONATE [Concomitant]
     Active Substance: SODIUM BICARBONATE
     Indication: Prophylaxis
     Dosage: 267 MILLIGRAM, QD
     Route: 048
     Dates: start: 201801
  14. BUDESONIDE\FORMOTEROL FUMARATE [Concomitant]
     Active Substance: BUDESONIDE\FORMOTEROL FUMARATE
     Indication: Asthma
     Dosage: TOTAL DAILY DOSE 2 PUFF, ROUTE: INHALATION
     Route: 055
     Dates: start: 202001
  15. BUDESONIDE\FORMOTEROL FUMARATE [Concomitant]
     Active Substance: BUDESONIDE\FORMOTEROL FUMARATE
     Indication: Asthma
     Dosage: TOTAL DAILY DOSE 2 PUFF, ROUTE: INHALATION
     Route: 055
     Dates: start: 202001
  16. CHOLECALCIFEROL [Concomitant]
     Active Substance: CHOLECALCIFEROL
     Indication: Product used for unknown indication
     Dosage: 1 CAPSULE, QD
     Route: 048
     Dates: start: 202007
  17. TRAMADOL HYDROCHLORIDE [Concomitant]
     Active Substance: TRAMADOL HYDROCHLORIDE
     Indication: Breast pain
     Dosage: 1 TABLET, BID
     Route: 048
     Dates: start: 20201216
  18. PREGABALIN [Concomitant]
     Active Substance: PREGABALIN
     Indication: Myalgia
     Dosage: 75 MILLIGRAM, QD
     Route: 048
     Dates: start: 20210209
  19. ONDANSETRON [Concomitant]
     Active Substance: ONDANSETRON
     Indication: Nausea
     Dosage: TOTAL DAILY DOSE 4 MILLIGRAM
     Route: 048
     Dates: start: 20210713
  20. LOPERAMIDE [Concomitant]
     Active Substance: LOPERAMIDE
     Indication: Diarrhoea
     Dosage: TOTAL DAILY DOSE 2 MILLIGRAM
     Route: 048
     Dates: start: 20210713
  21. ACETAMINOPHEN [Concomitant]
     Active Substance: ACETAMINOPHEN
     Indication: Arthralgia
     Dosage: TOTAL DAILY DOSE 500 MILLIGRAM
     Route: 048
     Dates: start: 20210713
  22. VIADIL [PARGEVERINE HYDROCHLORIDE] [Concomitant]
     Indication: Abdominal pain
     Dosage: TOTAL DAILY DOSE 25 GTT
     Route: 048
     Dates: start: 20210713
  23. OMEPRAZOLE [Concomitant]
     Active Substance: OMEPRAZOLE
     Indication: Prophylaxis against gastrointestinal ulcer
     Dosage: 20 MILLIGRAM, QD
     Route: 048
     Dates: start: 20210803
  24. MAGNESIUM LACTATE [Concomitant]
     Active Substance: MAGNESIUM LACTATE
     Indication: Hypomagnesaemia
     Dosage: 835 MILLIGRAM, QD
     Route: 048
     Dates: start: 20211026
  25. MAGNATIL C [Concomitant]
     Indication: Hypomagnesaemia
     Dosage: 2 DOSAGE FORM, QD
     Route: 048
     Dates: start: 20220118

REACTIONS (3)
  - Acute myocardial infarction [Fatal]
  - Pneumonia cytomegaloviral [Not Recovered/Not Resolved]
  - Pancytopenia [Not Recovered/Not Resolved]

NARRATIVE: CASE EVENT DATE: 20220118
